FAERS Safety Report 9014632 (Version 1)
Quarter: 2013Q1

REPORT INFORMATION
  Report Type: Spontaneous
  Country: US (occurrence: US)
  Receive Date: 20130115
  Receipt Date: 20130115
  Transmission Date: 20140127
  Serious: Yes (Other)
  Sender: FDA-Public Use
  Company Number: US-009507513-1301USA003571

PATIENT
  Age: 51 Year
  Sex: Female

DRUGS (1)
  1. SINGULAIR [Suspect]
     Indication: MULTIPLE ALLERGIES
     Dosage: 10 MG QD 1 TAB
     Route: 048

REACTIONS (6)
  - Weight bearing difficulty [Unknown]
  - Medication error [Unknown]
  - Joint swelling [Unknown]
  - Joint stiffness [Unknown]
  - Gait disturbance [Unknown]
  - Arthralgia [Unknown]
